FAERS Safety Report 18157431 (Version 1)
Quarter: 2020Q3

REPORT INFORMATION
  Report Type: Spontaneous
  Country: US (occurrence: US)
  Receive Date: 20200817
  Receipt Date: 20200817
  Transmission Date: 20201103
  Serious: No
  Sender: FDA-Public Use
  Company Number: US-SPECGX-T202000275

PATIENT
  Sex: Female

DRUGS (1)
  1. OXYCODONE [Suspect]
     Active Substance: OXYCODONE
     Indication: PRODUCT USED FOR UNKNOWN INDICATION
     Dosage: UNK
     Route: 065

REACTIONS (12)
  - Body temperature fluctuation [Unknown]
  - Chills [Unknown]
  - Hyperhidrosis [Unknown]
  - Feeling abnormal [Unknown]
  - Tinnitus [Unknown]
  - Nausea [Unknown]
  - Insomnia [Unknown]
  - Pain in extremity [Unknown]
  - Dizziness [Unknown]
  - Vomiting [Unknown]
  - Tremor [Unknown]
  - Pruritus [Unknown]
